FAERS Safety Report 4643002-2 (Version None)
Quarter: 2005Q2

REPORT INFORMATION
  Report Type: 
  Country: None (occurrence: None)
  Receive Date: 20050421
  Receipt Date: 20050212
  Transmission Date: 20051028
  Serious: Yes (Disabling)
  Sender: FDA-Public Use
  Company Number: 2003123831

PATIENT
  Age: 71 Year
  Sex: Female

DRUGS (13)
  1. LIPITOR [Suspect]
     Indication: HYPERCHOLESTEROLAEMIA
     Dosage: 10 MG (1 IN 1 D), ORAL
     Route: 048
     Dates: start: 20031122, end: 20031211
  2. BENIDIPINE HYDROCHLORIDE (BENIDIPINE HYDROCHLORIDE) [Concomitant]
  3. CIPRALAN [Concomitant]
  4. CEFDINIR (CEFDINIR) [Concomitant]
  5. IBUDILAST (IBUDILAST) [Concomitant]
  6. IOPAMIDOL [Concomitant]
  7. HEPARIN SODIUM [Concomitant]
  8. TETRACYCLINE HYDROCHLORIDE [Concomitant]
  9. NITROGLYCERIN [Concomitant]
  10. INSULIN HUMAN (INSULIN HUMAN) [Concomitant]
  11. INSULIN HUMAN INJECTION, ISOPHANE (INSULIN HUMAN INJECTION, ISOPHANE) [Concomitant]
  12. VOGLIBOSE (VOGLIBOSE) [Concomitant]
  13. EPALRESTAT (EPALRESTAT) [Concomitant]

REACTIONS (2)
  - DIABETES MELLITUS INADEQUATE CONTROL [None]
  - RETINAL HAEMORRHAGE [None]
